FAERS Safety Report 8934530 (Version 1)
Quarter: 2012Q4

REPORT INFORMATION
  Report Type: 
  Country: US (occurrence: US)
  Receive Date: 20121129
  Receipt Date: 20121129
  Transmission Date: 20130627
  Serious: No
  Sender: FDA-Public Use
  Company Number: US-GLAXOSMITHKLINE-A0980966A

PATIENT
  Age: 55 Year
  Sex: Female

DRUGS (8)
  1. FLOVENT [Suspect]
     Indication: EOSINOPHILIC OESOPHAGITIS
     Dosage: 2PUFF Three times per day
     Route: 055
     Dates: start: 20120608
  2. ATENOLOL [Concomitant]
  3. WARFARIN [Concomitant]
  4. FLUOXETINE [Concomitant]
  5. AMOXICILLIN [Concomitant]
  6. LISINOPRIL [Concomitant]
  7. OMEPRAZOLE [Concomitant]
  8. CLARITHROMYCIN [Concomitant]

REACTIONS (1)
  - Dysgeusia [Not Recovered/Not Resolved]
